FAERS Safety Report 26025665 (Version 1)
Quarter: 2025Q4

REPORT INFORMATION
  Report Type: Spontaneous
  Country: EU (occurrence: EU)
  Receive Date: 20251111
  Receipt Date: 20251111
  Transmission Date: 20260118
  Serious: Yes (Hospitalization)
  Sender: RANBAXY
  Company Number: EU-SUN PHARMACEUTICAL INDUSTRIES LTD-2025RR-535282

PATIENT
  Age: 54 Year
  Sex: Female
  Weight: 69 kg

DRUGS (3)
  1. AMOXICILLIN [Suspect]
     Active Substance: AMOXICILLIN
     Indication: Bronchitis
     Dosage: 2 GRAM, DAILY
     Route: 048
     Dates: start: 20250214, end: 20250218
  2. ACETAMINOPHEN [Suspect]
     Active Substance: ACETAMINOPHEN
     Indication: Pyrexia
     Dosage: 1 DOSAGE FORM, IN TOTAL
     Route: 048
     Dates: start: 20250217, end: 20250217
  3. HEXAMIDINE DIISETHIONATE\LIDOCAINE HYDROCHLORIDE [Suspect]
     Active Substance: HEXAMIDINE DIISETHIONATE\LIDOCAINE HYDROCHLORIDE
     Indication: Bronchitis
     Dosage: 6 DOSAGE FORM, DAILY
     Route: 002
     Dates: start: 2025, end: 2025

REACTIONS (1)
  - Rash maculo-papular [Recovered/Resolved]

NARRATIVE: CASE EVENT DATE: 20250218
